FAERS Safety Report 7383006-2 (Version None)
Quarter: 2011Q1

REPORT INFORMATION
  Report Type: 
  Country: None (occurrence: None)
  Receive Date: 20110330
  Receipt Date: 20110315
  Transmission Date: 20110831
  Serious: Yes (Life-Threatening, Hospitalization)
  Sender: FDA-Public Use
  Company Number: DE-JNJFOC-20040301747

PATIENT
  Age: 68 Year
  Sex: Male

DRUGS (11)
  1. REMICADE [Suspect]
     Route: 042
  2. REMICADE [Suspect]
     Route: 042
  3. ADALIMUMAB [Concomitant]
  4. ADALIMUMAB [Concomitant]
  5. METHOTREXATE [Concomitant]
     Indication: RHEUMATOID ARTHRITIS
  6. LEFLUNOMIDE [Concomitant]
  7. ADALIMUMAB [Concomitant]
  8. RITUXIMAB [Concomitant]
     Indication: RHEUMATOID ARTHRITIS
     Dosage: 7TH AND 8TH APPLICATION RECEIVED
  9. REMICADE [Suspect]
     Indication: RHEUMATOID ARTHRITIS
     Dosage: 3 INFUSIONS
     Route: 042
  10. RITUXIMAB [Concomitant]
  11. REMICADE [Suspect]
     Route: 042

REACTIONS (16)
  - WEIGHT DECREASED [None]
  - PYREXIA [None]
  - SYNCOPE [None]
  - AORTIC DISSECTION [None]
  - NON-HODGKIN'S LYMPHOMA [None]
  - BACK PAIN [None]
  - ATRIAL FLUTTER [None]
  - TACHYCARDIA [None]
  - HYPOTENSION [None]
  - FALL [None]
  - VENTRICULAR DYSFUNCTION [None]
  - BLOOD PRESSURE INCREASED [None]
  - NEUTROPENIA [None]
  - ATRIAL FIBRILLATION [None]
  - CHILLS [None]
  - ELECTROCARDIOGRAM QT PROLONGED [None]
